FAERS Safety Report 6259900-2 (Version None)
Quarter: 2009Q3

REPORT INFORMATION
  Report Type: 
  Country: None (occurrence: None)
  Receive Date: 20090706
  Receipt Date: 20090706
  Transmission Date: 20100115
  Serious: Yes (Other)
  Sender: FDA-Public Use
  Company Number: None

PATIENT
  Age: 16 Year
  Sex: Male
  Weight: 47.6277 kg

DRUGS (1)
  1. SERTRALINE HCL 100 MG 31722-0214-05 [Suspect]
     Indication: DEPRESSION
     Dosage: 100 MG 2 PILLS IN AM PO
     Route: 048
     Dates: start: 20090608, end: 20090701

REACTIONS (3)
  - ANXIETY [None]
  - DEPRESSION [None]
  - PRODUCT MEASURED POTENCY ISSUE [None]
